FAERS Safety Report 24462196 (Version 1)
Quarter: 2024Q4

REPORT INFORMATION
  Report Type: Report from Study
  Country: CA (occurrence: CA)
  Receive Date: 20241018
  Receipt Date: 20241018
  Transmission Date: 20250114
  Serious: No
  Sender: ROCHE
  Company Number: CA-ROCHE-3567808

PATIENT
  Sex: Female

DRUGS (23)
  1. RITUXAN [Suspect]
     Active Substance: RITUXIMAB
     Indication: Rheumatoid arthritis
     Dosage: PREVIOUS INFUSION: 27/SEP/2023
     Route: 041
     Dates: start: 20110113
  2. ACETAMINOPHEN [Concomitant]
     Active Substance: ACETAMINOPHEN
     Route: 048
     Dates: start: 20110113
  3. CALCIUM [Concomitant]
     Active Substance: CALCIUM
  4. CELEBREX [Concomitant]
     Active Substance: CELECOXIB
  5. DIPHENHYDRAMINE [Concomitant]
     Active Substance: DIPHENHYDRAMINE
     Dates: start: 20110113
  6. ESTROGEL [Concomitant]
     Active Substance: ESTRADIOL
  7. FLUCONAZOLE [Concomitant]
     Active Substance: FLUCONAZOLE
  8. FOLIC ACID [Concomitant]
     Active Substance: FOLIC ACID
  9. HYDROMORPHONE [Concomitant]
     Active Substance: HYDROMORPHONE
  10. INVOKANA [Concomitant]
     Active Substance: CANAGLIFLOZIN
  11. LEXAPRO [Concomitant]
     Active Substance: ESCITALOPRAM OXALATE
  12. METFORMIN HYDROCHLORIDE [Concomitant]
     Active Substance: METFORMIN HYDROCHLORIDE
  13. METHOTREXATE [Concomitant]
     Active Substance: METHOTREXATE
  14. METHYLPREDNISOLONE [Concomitant]
     Active Substance: METHYLPREDNISOLONE
     Route: 042
     Dates: start: 20110113
  15. METOPROLOL [Concomitant]
     Active Substance: METOPROLOL
     Dates: start: 20181206
  16. OZEMPIC [Concomitant]
     Active Substance: SEMAGLUTIDE
  17. PANTOPRAZOLE SODIUM [Concomitant]
     Active Substance: PANTOPRAZOLE SODIUM
  18. PLAQUENIL [Concomitant]
     Active Substance: HYDROXYCHLOROQUINE SULFATE
  19. PREDNISONE [Concomitant]
     Active Substance: PREDNISONE
  20. PROGESTERONE [Concomitant]
     Active Substance: PROGESTERONE
  21. RISEDRONATE SODIUM [Concomitant]
     Active Substance: RISEDRONATE SODIUM
  22. ROSUVASTATIN [Concomitant]
     Active Substance: ROSUVASTATIN
  23. ZOPICLONE [Concomitant]
     Active Substance: ZOPICLONE

REACTIONS (2)
  - COVID-19 [Recovered/Resolved]
  - Arthralgia [Unknown]
